FAERS Safety Report 20881255 (Version 1)
Quarter: 2022Q2

REPORT INFORMATION
  Report Type: Report from Study
  Country: MX (occurrence: MX)
  Receive Date: 20220526
  Receipt Date: 20220526
  Transmission Date: 20220721
  Serious: Yes (Disabling, Other)
  Sender: FDA-Public Use
  Company Number: MX-ABBVIE-22K-107-4411383-00

PATIENT
  Sex: Female
  Weight: 58 kg

DRUGS (1)
  1. HUMIRA [Suspect]
     Active Substance: ADALIMUMAB
     Indication: Rheumatoid arthritis
     Route: 058
     Dates: start: 20181126

REACTIONS (5)
  - Spinal deformity [Unknown]
  - Walking disability [Unknown]
  - Hiatus hernia [Unknown]
  - Dyspnoea [Unknown]
  - Hypertension [Unknown]
